FAERS Safety Report 8167956-5 (Version None)
Quarter: 2012Q1

REPORT INFORMATION
  Report Type: 
  Country: None (occurrence: None)
  Receive Date: 20120227
  Receipt Date: 20120215
  Transmission Date: 20120608
  Serious: Yes (Hospitalization)
  Sender: FDA-Public Use
  Company Number: FR-VIIV HEALTHCARE LIMITED-B0655019A

PATIENT
  Sex: Male
  Weight: 66 kg

DRUGS (5)
  1. VIDEX [Concomitant]
     Indication: HIV INFECTION
     Dates: start: 19990201
  2. ZIAGEN [Concomitant]
     Indication: HIV INFECTION
     Dates: start: 20011203
  3. SUSTIVA [Suspect]
     Indication: HIV INFECTION
     Dates: start: 19990201
  4. ETIOVEN [Concomitant]
     Indication: VEIN DISORDER
     Dosage: 1IUAX TWICE PER DAY
     Dates: start: 20060522
  5. MARAVIROC [Suspect]
     Indication: HIV INFECTION
     Dates: start: 20100201

REACTIONS (5)
  - PRESYNCOPE [None]
  - MALAISE [None]
  - VISION BLURRED [None]
  - MUSCULOSKELETAL PAIN [None]
  - URINARY INCONTINENCE [None]
